FAERS Safety Report 16323935 (Version 3)
Quarter: 2019Q2

REPORT INFORMATION
  Report Type: Report from Study
  Country: FR (occurrence: FR)
  Receive Date: 20190517
  Receipt Date: 20190612
  Transmission Date: 20190711
  Serious: Yes (Death)
  Sender: FDA-Public Use
  Company Number: FR-IPSEN BIOPHARMACEUTICALS, INC.-2019-07856

PATIENT
  Age: 1 Month
  Sex: Male
  Weight: 2.8 kg

DRUGS (5)
  1. PARACETAMOL [Concomitant]
     Active Substance: ACETAMINOPHEN
     Dosage: ONCE IN 6 HOURS IF NEDDED
     Route: 042
     Dates: start: 20190307, end: 20190511
  2. INCRELEX [Suspect]
     Active Substance: MECASERMIN
     Indication: DONOHUE SYNDROME
     Dosage: SITE: THIGH
     Route: 058
     Dates: start: 20190412, end: 20190511
  3. INCRELEX [Suspect]
     Active Substance: MECASERMIN
     Indication: OFF LABEL USE
  4. HYDROXYZINE [Concomitant]
     Active Substance: HYDROXYZINE HYDROCHLORIDE
     Dosage: 10 MG/5ML SYRUP (1 IN 8 HOURS IF NEEDED)
     Route: 048
     Dates: start: 20190321, end: 20190511
  5. PROPRANOLOL [Concomitant]
     Active Substance: PROPRANOLOL HYDROCHLORIDE
     Dosage: 3AM, 9AM, 3 PM AND 9 PM
     Route: 048
     Dates: start: 20190307, end: 20190511

REACTIONS (3)
  - Product use in unapproved indication [Unknown]
  - Product use issue [Unknown]
  - Cardiac failure [Fatal]

NARRATIVE: CASE EVENT DATE: 20190412
